FAERS Safety Report 4719220-1 (Version None)
Quarter: 2005Q3

REPORT INFORMATION
  Report Type: 
  Country: None (occurrence: None)
  Receive Date: 20050718
  Receipt Date: 20040818
  Transmission Date: 20060218
  Serious: Yes (Other)
  Sender: FDA-Public Use
  Company Number: 002#1#2004-00107

PATIENT
  Sex: Female

DRUGS (1)
  1. UNIRETIC [Suspect]
     Indication: HYPERTENSION
     Dosage: 1 ONCE, ORAL
     Route: 048
     Dates: start: 20040510, end: 20040510

REACTIONS (1)
  - ANGIONEUROTIC OEDEMA [None]
